FAERS Safety Report 7050568-4 (Version None)
Quarter: 2010Q4

REPORT INFORMATION
  Report Type: 
  Country: None (occurrence: None)
  Receive Date: 20101018
  Receipt Date: 20101007
  Transmission Date: 20110411
  Serious: Yes (Hospitalization)
  Sender: FDA-Public Use
  Company Number: US-MYLANLABS-2010S1018451

PATIENT
  Age: 31 Year
  Sex: Male

DRUGS (6)
  1. CLOZAPINE [Suspect]
     Indication: SCHIZOAFFECTIVE DISORDER
     Route: 048
  2. PRILOSEC [Interacting]
     Route: 048
     Dates: start: 20100801, end: 20100901
  3. DEPAKOTE [Concomitant]
  4. ATIVAN [Concomitant]
  5. SENNA [Concomitant]
  6. VISTARIL [Concomitant]

REACTIONS (3)
  - DRUG INTERACTION [None]
  - DRUG LEVEL DECREASED [None]
  - SCHIZOAFFECTIVE DISORDER [None]
